FAERS Safety Report 9540239 (Version 1)
Quarter: 2013Q3

REPORT INFORMATION
  Report Type: Spontaneous
  Country: US (occurrence: US)
  Receive Date: 20130920
  Receipt Date: 20130920
  Transmission Date: 20140515
  Serious: Yes (Hospitalization, Other)
  Sender: FDA-Public Use
  Company Number: US-GE HEALTHCARE MEDICAL DIAGNOSTICS-OMPQ-PR-1309S-1128

PATIENT
  Age: 56 Year
  Sex: Male
  Weight: 70.1 kg

DRUGS (18)
  1. OMNIPAQUE [Suspect]
     Indication: MALIGNANT MELANOMA
     Route: 042
     Dates: start: 20130115, end: 20130115
  2. OMNIPAQUE [Suspect]
     Indication: DIAGNOSTIC PROCEDURE
  3. AXITINIB [Suspect]
     Indication: MALIGNANT MELANOMA
     Route: 048
     Dates: start: 20120223, end: 20121009
  4. AXITINIB [Suspect]
     Route: 048
     Dates: start: 20121030, end: 20130122
  5. BENICAR [Concomitant]
     Indication: HYPERTENSION
     Route: 065
     Dates: start: 20120926, end: 20130205
  6. SYNTHROID [Concomitant]
     Indication: HYPOTHYROIDISM
     Route: 048
     Dates: start: 20121221, end: 20130205
  7. SYNTHROID [Concomitant]
     Route: 048
     Dates: start: 20130206
  8. METOPROLOL [Concomitant]
     Indication: HYPERTENSION
     Route: 065
     Dates: start: 20120429
  9. IRON [Concomitant]
     Indication: IRON DEFICIENCY
     Route: 065
     Dates: start: 20120426
  10. VIAGRA [Concomitant]
     Indication: ERECTILE DYSFUNCTION
     Route: 065
  11. SODIUM FLUORIDE [Concomitant]
     Indication: ROUTINE HEALTH MAINTENANCE
     Route: 065
  12. FOLIC ACID [Concomitant]
     Indication: ROUTINE HEALTH MAINTENANCE
     Dosage: 1 TAB
     Route: 065
  13. PREVACID [Concomitant]
     Indication: GASTROOESOPHAGEAL REFLUX DISEASE
     Route: 065
  14. PROPECIA [Concomitant]
     Indication: ALOPECIA
     Route: 065
  15. OMEGA-3 TRIGLYCERIDES [Concomitant]
     Indication: ROUTINE HEALTH MAINTENANCE
     Route: 065
  16. COENZYME Q10 [Concomitant]
     Indication: ROUTINE HEALTH MAINTENANCE
     Route: 065
  17. ASPIRIN [Concomitant]
     Indication: CARDIOVASCULAR EVENT PROPHYLAXIS
     Route: 065
  18. ASCORBIC ACID [Concomitant]
     Indication: ROUTINE HEALTH MAINTENANCE
     Route: 048

REACTIONS (1)
  - Blood creatinine increased [Recovered/Resolved]
